FAERS Safety Report 15075248 (Version 1)
Quarter: 2018Q2

REPORT INFORMATION
  Report Type: Spontaneous
  Country: US (occurrence: US)
  Receive Date: 20180627
  Receipt Date: 20180627
  Transmission Date: 20180711
  Serious: Yes (Other)
  Sender: FDA-Public Use
  Company Number: US-SAOL THERAPEUTICS-2018SAO00143

PATIENT
  Age: 59 Year
  Sex: Male

DRUGS (3)
  1. BUPIVACAINE. [Suspect]
     Active Substance: BUPIVACAINE
     Dosage: 9.584 MG, \DAY
     Route: 037
  2. DILAUDID [Suspect]
     Active Substance: HYDROMORPHONE HYDROCHLORIDE
     Dosage: 1.1981 MG, \DAY
     Route: 037
  3. COMPOUNDED BACLOFEN [Suspect]
     Active Substance: BACLOFEN
     Dosage: 898.5 ?G, \DAY
     Route: 037

REACTIONS (3)
  - Complication associated with device [Unknown]
  - Back pain [Unknown]
  - Device damage [Unknown]

NARRATIVE: CASE EVENT DATE: 20180130
